FAERS Safety Report 24124514 (Version 1)
Quarter: 2024Q3

REPORT INFORMATION
  Report Type: Spontaneous
  Country: JP (occurrence: JP)
  Receive Date: 20240723
  Receipt Date: 20240723
  Transmission Date: 20241016
  Serious: Yes (Hospitalization)
  Sender: ROCHE
  Company Number: JP-ROCHE-3579533

PATIENT
  Age: 69 Year
  Sex: Male

DRUGS (17)
  1. VALGANCICLOVIR [Suspect]
     Active Substance: VALGANCICLOVIR
     Indication: Cytomegalovirus infection
     Dosage: BID, ON DAY 18
     Route: 048
  2. VALGANCICLOVIR [Suspect]
     Active Substance: VALGANCICLOVIR
     Dosage: BID, ON DAY 30
     Route: 048
  3. VALGANCICLOVIR [Suspect]
     Active Substance: VALGANCICLOVIR
     Route: 048
  4. GANCICLOVIR [Suspect]
     Active Substance: GANCICLOVIR
     Indication: Cytomegalovirus infection
     Dosage: 2.5 MG/KG X 2/DAY
     Route: 042
  5. OBINUTUZUMAB [Suspect]
     Active Substance: OBINUTUZUMAB
     Indication: Follicular lymphoma
     Dosage: SIX COURSES
     Route: 042
     Dates: start: 202011
  6. OBINUTUZUMAB [Suspect]
     Active Substance: OBINUTUZUMAB
     Indication: Lymphopenia
  7. BENDAMUSTINE [Suspect]
     Active Substance: BENDAMUSTINE
     Indication: Rash
     Route: 065
     Dates: start: 201911
  8. BENDAMUSTINE [Suspect]
     Active Substance: BENDAMUSTINE
     Indication: Follicular lymphoma
     Route: 065
     Dates: start: 202011
  9. RITUXIMAB [Concomitant]
     Active Substance: RITUXIMAB
     Indication: Rash
     Dosage: RECEIVED THREE COURSES
     Route: 065
     Dates: start: 201810
  10. RITUXIMAB [Concomitant]
     Active Substance: RITUXIMAB
     Dosage: FOUR COURSES
     Route: 065
     Dates: start: 201911
  11. RITUXIMAB [Concomitant]
     Active Substance: RITUXIMAB
     Dosage: RITUXIMAB MAINTENANCE
     Route: 065
  12. RITUXIMAB [Concomitant]
     Active Substance: RITUXIMAB
     Route: 065
  13. CYCLOPHOSPHAMIDE [Concomitant]
     Active Substance: CYCLOPHOSPHAMIDE
     Indication: Follicular lymphoma
     Dosage: RECEIVED THREE COURSES
     Dates: start: 201810
  14. VINCRISTINE [Concomitant]
     Active Substance: VINCRISTINE
     Indication: Follicular lymphoma
     Dosage: RECEIVED THREE COURSES
     Dates: start: 201810
  15. PREDNISOLONE [Concomitant]
     Active Substance: PREDNISOLONE
     Indication: Follicular lymphoma
     Dosage: RECEIVED THREE COURSES
     Dates: start: 201810
  16. DOXORUBICIN [Concomitant]
     Active Substance: DOXORUBICIN
  17. HYDROCORTISONE [Concomitant]
     Active Substance: HYDROCORTISONE\HYDROCORTISONE ACETATE

REACTIONS (3)
  - Neutropenia [Unknown]
  - Off label use [Unknown]
  - Cytomegalovirus enteritis [Unknown]
